FAERS Safety Report 12740807 (Version 1)
Quarter: 2016Q3

REPORT INFORMATION
  Report Type: Spontaneous
  Country: US (occurrence: US)
  Receive Date: 20160914
  Receipt Date: 20160914
  Transmission Date: 20161109
  Serious: No
  Sender: FDA-Public Use
  Company Number: US-TEVA-583995USA

PATIENT
  Sex: Female
  Weight: 49.94 kg

DRUGS (1)
  1. FLUOXETINE [Suspect]
     Active Substance: FLUOXETINE HYDROCHLORIDE
     Indication: ANXIETY
     Dates: start: 20150803, end: 20150803

REACTIONS (2)
  - Fatigue [Unknown]
  - Dizziness [Unknown]
